FAERS Safety Report 6826105-3 (Version None)
Quarter: 2010Q3

REPORT INFORMATION
  Report Type: 
  Country: None (occurrence: None)
  Receive Date: 20100708
  Receipt Date: 20100708
  Transmission Date: 20110219
  Serious: Yes (Other)
  Sender: FDA-Public Use
  Company Number: None

PATIENT
  Age: 67 Year
  Sex: Female

DRUGS (5)
  1. ACTOS [Suspect]
     Dosage: ORAL 1QD
  2. FUROSEMIIDE [Concomitant]
  3. JANUVIA [Concomitant]
  4. ALLOPURINOL [Concomitant]
  5. DIOVN [Concomitant]

REACTIONS (3)
  - ANAEMIA [None]
  - BLOOD IRON DECREASED [None]
  - JOINT SWELLING [None]
